FAERS Safety Report 7411276-0 (Version None)
Quarter: 2011Q2

REPORT INFORMATION
  Report Type: 
  Country: None (occurrence: None)
  Receive Date: 20110413
  Receipt Date: 20100513
  Transmission Date: 20111010
  Serious: Yes (Other)
  Sender: FDA-Public Use
  Company Number: US-BRISTOL-MYERS SQUIBB COMPANY-15105513

PATIENT
  Age: 49 Year
  Sex: Female

DRUGS (2)
  1. ERBITUX [Suspect]
     Indication: HEAD AND NECK CANCER
     Dosage: 1DF-600 UNITS NOT MENTIONED
     Dates: start: 20100430, end: 20100430
  2. BENADRYL [Concomitant]
     Indication: PREMEDICATION

REACTIONS (5)
  - VOMITING PROJECTILE [None]
  - LETHARGY [None]
  - RASH [None]
  - WHEEZING [None]
  - PRURITUS [None]
